FAERS Safety Report 8880297 (Version 1)
Quarter: 2012Q4

REPORT INFORMATION
  Report Type: 
  Country: GB (occurrence: GB)
  Receive Date: 20121031
  Receipt Date: 20121031
  Transmission Date: 20130627
  Serious: Yes (Other)
  Sender: FDA-Public Use
  Company Number: PHHY2012GB096447

PATIENT
  Age: 86 Year
  Sex: Male

DRUGS (6)
  1. AMIODARONE [Suspect]
     Indication: LEFT VENTRICULAR DYSFUNCTION
     Route: 048
     Dates: start: 201202
  2. LATANOPROST [Concomitant]
  3. WARFARIN [Concomitant]
  4. TAMSULOSIN [Concomitant]
  5. CANDESARTAN [Concomitant]
  6. SILDENAFIL [Concomitant]

REACTIONS (1)
  - Musculoskeletal pain [Recovering/Resolving]
